FAERS Safety Report 6163447-1 (Version None)
Quarter: 2009Q2

REPORT INFORMATION
  Report Type: 
  Country: None (occurrence: None)
  Receive Date: 20090420
  Receipt Date: 20090420
  Transmission Date: 20091009
  Serious: No
  Sender: FDA-Public Use
  Company Number: None

PATIENT
  Age: 58 Year
  Sex: Male
  Weight: 79.9 kg

DRUGS (11)
  1. VARENICLINE [Suspect]
     Indication: SMOKING CESSATION THERAPY
     Dosage: 1 MG BID PO
     Route: 048
     Dates: start: 20070627, end: 20070725
  2. CALCIUM CARB [Concomitant]
  3. CLONAZEPAM [Concomitant]
  4. CYANOCOBALAMIN [Concomitant]
  5. DOXEPIN HCL [Concomitant]
  6. FLUOXETINE HCL [Concomitant]
  7. GABAPENTIN [Concomitant]
  8. IBUPROFEN [Concomitant]
  9. NICOTINE [Concomitant]
  10. SIMVASTATIN [Concomitant]
  11. SUN BATH PROTECTIVE TANNING LOTION [Concomitant]

REACTIONS (2)
  - DISORIENTATION [None]
  - NIGHTMARE [None]
